FAERS Safety Report 12199495 (Version 1)
Quarter: 2016Q1

REPORT INFORMATION
  Report Type: Report from Study
  Country: BR (occurrence: BR)
  Receive Date: 20160322
  Receipt Date: 20160322
  Transmission Date: 20160526
  Serious: Yes (Other)
  Sender: FDA-Public Use
  Company Number: BR-EMD SERONO-7191992

PATIENT
  Age: 54 Year
  Sex: Female

DRUGS (6)
  1. REBIF [Suspect]
     Active Substance: INTERFERON BETA-1A
  2. REBIF [Suspect]
     Active Substance: INTERFERON BETA-1A
     Indication: MULTIPLE SCLEROSIS
     Dates: start: 20130123
  3. CODEINE [Concomitant]
     Active Substance: CODEINE
     Dosage: WHEN SHE EXPERIENCED STRONG PAIN
  4. RIVOTRIL [Concomitant]
     Active Substance: CLONAZEPAM
     Indication: PRODUCT USED FOR UNKNOWN INDICATION
  5. PREDNISONE. [Concomitant]
     Active Substance: PREDNISONE
     Indication: PRODUCT USED FOR UNKNOWN INDICATION
  6. CODEINE [Concomitant]
     Active Substance: CODEINE
     Indication: PAIN
     Dates: start: 2013

REACTIONS (19)
  - Blood pressure decreased [Recovered/Resolved]
  - Injection site bruising [Not Recovered/Not Resolved]
  - Bladder pain [Unknown]
  - Injection site erythema [Recovered/Resolved]
  - Injection site pain [Not Recovered/Not Resolved]
  - Injection site nodule [Not Recovered/Not Resolved]
  - Injection site induration [Recovered/Resolved]
  - Malaise [Recovered/Resolved]
  - Pain in extremity [Recovered/Resolved]
  - Insomnia [Unknown]
  - Crying [Recovered/Resolved]
  - Pallor [Recovered/Resolved]
  - Pyrexia [Recovering/Resolving]
  - Delirium [Recovering/Resolving]
  - Muscle spasms [Not Recovered/Not Resolved]
  - Movement disorder [Recovering/Resolving]
  - Lack of injection site rotation [Not Recovered/Not Resolved]
  - Eye disorder [Recovered/Resolved]
  - Abasia [Unknown]

NARRATIVE: CASE EVENT DATE: 20130123
